FAERS Safety Report 4725174-4 (Version None)
Quarter: 2005Q3

REPORT INFORMATION
  Report Type: 
  Country: None (occurrence: None)
  Receive Date: 20050725
  Receipt Date: 20050715
  Transmission Date: 20060218
  Serious: Yes (Hospitalization)
  Sender: FDA-Public Use
  Company Number: 216146

PATIENT
  Age: 41 Year
  Sex: Female

DRUGS (5)
  1. HERCEPTIN [Suspect]
     Indication: BREAST CANCER
     Dosage: 360 MG, Q3W, INTRAVENOUS
     Route: 042
  2. TAMOXIFEN CITRATE [Concomitant]
  3. LUPRON [Concomitant]
  4. MULTIVITAMIN (MULTIVITAMINS NOS) [Concomitant]
  5. CALCIUM (CALCIUM NOS) [Concomitant]

REACTIONS (7)
  - ATELECTASIS [None]
  - ELECTROCARDIOGRAM T WAVE INVERSION [None]
  - HAEMOGLOBIN DECREASED [None]
  - LUNG INFILTRATION [None]
  - MYOCARDIAL ISCHAEMIA [None]
  - SCAR [None]
  - VIRAL PERICARDITIS [None]
